FAERS Safety Report 10360657 (Version 1)
Quarter: 2014Q3

REPORT INFORMATION
  Report Type: Report from Study
  Country: ZA (occurrence: ZA)
  Receive Date: 20140804
  Receipt Date: 20140804
  Transmission Date: 20150326
  Serious: Yes (Death, Hospitalization)
  Sender: FDA-Public Use
  Company Number: ZA-BRISTOL-MYERS SQUIBB COMPANY-21249859

PATIENT
  Age: 67 Year
  Sex: Male

DRUGS (3)
  1. BUPRENORPHINE [Concomitant]
     Active Substance: BUPRENORPHINE
  2. CELEBREX [Concomitant]
     Active Substance: CELECOXIB
  3. IPILIMUMAB [Suspect]
     Active Substance: IPILIMUMAB
     Indication: MALIGNANT MELANOMA
     Route: 042
     Dates: start: 20140331, end: 20140514

REACTIONS (2)
  - Metastases to central nervous system [Fatal]
  - Diverticulitis [Recovered/Resolved]

NARRATIVE: CASE EVENT DATE: 2014
